FAERS Safety Report 24398735 (Version 1)
Quarter: 2024Q4

REPORT INFORMATION
  Report Type: Spontaneous
  Country: CN (occurrence: CN)
  Receive Date: 20241004
  Receipt Date: 20241004
  Transmission Date: 20250115
  Serious: Yes (Life-Threatening)
  Sender: JOHNSON AND JOHNSON
  Company Number: CN-BAYER-2024A140524

PATIENT
  Age: 73 Year
  Sex: Male
  Weight: 66 kg

DRUGS (2)
  1. XARELTO [Suspect]
     Active Substance: RIVAROXABAN
     Indication: Lung neoplasm malignant
     Dosage: 15 MG, BID
     Route: 048
     Dates: start: 20240911, end: 20240926
  2. XARELTO [Suspect]
     Active Substance: RIVAROXABAN
     Dosage: 10 MG
     Route: 048
     Dates: start: 20240927

REACTIONS (6)
  - Prothrombin time prolonged [Unknown]
  - Blood lactate dehydrogenase increased [Unknown]
  - Fibrin D dimer increased [Unknown]
  - International normalised ratio increased [Unknown]
  - Activated partial thromboplastin time prolonged [Unknown]
  - Off label use [Unknown]

NARRATIVE: CASE EVENT DATE: 20240926
